FAERS Safety Report 5740264-5 (Version None)
Quarter: 2008Q2

REPORT INFORMATION
  Report Type: 
  Country: None (occurrence: None)
  Receive Date: 20080516
  Receipt Date: 20080509
  Transmission Date: 20081010
  Serious: Yes (Other)
  Sender: FDA-Public Use
  Company Number: US-ASTRAZENECA-2008UW09571

PATIENT
  Age: 81 Year
  Sex: Female

DRUGS (11)
  1. ATACAND [Suspect]
     Dosage: 1 TABLET DAILY
     Route: 048
  2. NEOCITRAN COLDS AND FLU [Interacting]
     Indication: COUGH
     Route: 048
     Dates: start: 20080410, end: 20080412
  3. SYNTHROID [Interacting]
     Dosage: 1 TABLET DAILY
     Route: 048
  4. PARIET [Interacting]
     Dosage: 1 TABLET BID
     Route: 048
  5. SERTRALINE [Interacting]
     Dosage: T TABLET DAILY
     Route: 048
  6. BROMAZEPAM [Interacting]
     Dosage: 1 TABLET DAILY
     Route: 048
  7. MOBICOX [Interacting]
     Dosage: 1 TABLET DAILY
     Route: 048
  8. HYDROCHLOROTHIAZIDE [Interacting]
  9. PROPRANOLOL [Interacting]
     Dosage: 1 TABLET BID
     Route: 048
  10. DOCUSATE SODIUM [Interacting]
     Dosage: 1 TABLET DAILY
     Route: 048
  11. FERROUS GLUCONATE [Interacting]
     Dosage: 1 TABLET DAILY
     Route: 048

REACTIONS (3)
  - DRUG INTERACTION [None]
  - FALL [None]
  - FEELING ABNORMAL [None]
